FAERS Safety Report 6412037-1 (Version None)
Quarter: 2009Q4

REPORT INFORMATION
  Report Type: 
  Country: None (occurrence: None)
  Receive Date: 20091023
  Receipt Date: 20091012
  Transmission Date: 20100525
  Serious: Yes (Hospitalization)
  Sender: FDA-Public Use
  Company Number: US-PFIZER INC-2009282646

PATIENT
  Sex: Female
  Weight: 87.1 kg

DRUGS (5)
  1. XANAX [Suspect]
     Route: 065
  2. BLINDED THERAPY [Suspect]
     Indication: CHRONIC OBSTRUCTIVE PULMONARY DISEASE
     Dosage: UNK
     Dates: start: 20090330, end: 20090623
  3. BENICAR HCT [Concomitant]
  4. LYRICA [Concomitant]
  5. ALPRAZOLAM [Concomitant]

REACTIONS (12)
  - ABDOMINAL PAIN [None]
  - BACK PAIN [None]
  - BALANCE DISORDER [None]
  - BLOOD CREATINE PHOSPHOKINASE INCREASED [None]
  - CHRONIC OBSTRUCTIVE PULMONARY DISEASE [None]
  - DISEASE PROGRESSION [None]
  - DIZZINESS [None]
  - DRUG ABUSE [None]
  - FALL [None]
  - HEADACHE [None]
  - MUSCULOSKELETAL CHEST PAIN [None]
  - RENAL CYST [None]
